FAERS Safety Report 6133833-4 (Version None)
Quarter: 2009Q1

REPORT INFORMATION
  Report Type: 
  Country: None (occurrence: None)
  Receive Date: 20090324
  Receipt Date: 20090309
  Transmission Date: 20090719
  Serious: Yes (Life-Threatening)
  Sender: FDA-Public Use
  Company Number: 2009S1004064

PATIENT
  Age: 60 Year
  Sex: Female
  Weight: 54 kg

DRUGS (13)
  1. PROPOFOL [Suspect]
     Indication: INDUCTION OF ANAESTHESIA
     Dosage: INTRAVENOUS; 4 MG/KG;EVERY HOUR;INTRAVENOUS DRIP
     Route: 042
  2. PROPOFOL [Suspect]
     Indication: MAINTENANCE OF ANAESTHESIA
     Dosage: INTRAVENOUS; 4 MG/KG;EVERY HOUR;INTRAVENOUS DRIP
     Route: 042
  3. PROPRANOLOL [Suspect]
     Indication: INDUCTION OF ANAESTHESIA
     Dosage: .6 MG
  4. ALPROSTADIL [Suspect]
     Dosage: .03 UG/KG; INTRAVENOUS DRIP
     Route: 041
  5. FAMOTIDINE (CON.) [Concomitant]
  6. PETHIDINE (CON.) [Concomitant]
  7. MIDAZOLAM (CON.) [Concomitant]
  8. ATROPINE (CON.) [Concomitant]
  9. FENTANYL (CON.) [Concomitant]
  10. VECURONIUM BROMIDE (CON.) [Concomitant]
  11. NITROUS OXIDE (CON.) [Concomitant]
  12. ISOSORBIDE DINITRATE (CON.) [Concomitant]
  13. LIDOCAINE (CON.) [Concomitant]

REACTIONS (7)
  - ARTERIOSPASM CORONARY [None]
  - ATRIOVENTRICULAR BLOCK [None]
  - BRADYCARDIA [None]
  - CARDIAC ARREST [None]
  - HYPOTENSION [None]
  - NO THERAPEUTIC RESPONSE [None]
  - VENTRICULAR TACHYCARDIA [None]
